FAERS Safety Report 16079173 (Version 1)
Quarter: 2019Q1

REPORT INFORMATION
  Report Type: Spontaneous
  Country: US (occurrence: US)
  Receive Date: 20190315
  Receipt Date: 20190315
  Transmission Date: 20190418
  Serious: Yes (Other)
  Sender: FDA-Public Use
  Company Number: US-PFIZER INC-2019108874

PATIENT
  Age: 37 Year
  Sex: Male
  Weight: 60 kg

DRUGS (2)
  1. NEURONTIN [Suspect]
     Active Substance: GABAPENTIN
     Indication: ANXIETY
     Dosage: 600 MG, UNK
     Route: 048
  2. NEURONTIN [Suspect]
     Active Substance: GABAPENTIN
     Indication: PAIN
     Dosage: 900 MG, 3X/DAY (300 MG, 3 CAPSULES 3 TIMES PER DAY)
     Route: 048
     Dates: start: 201103

REACTIONS (7)
  - Weight decreased [Unknown]
  - Product size issue [Unknown]
  - Dysphagia [Unknown]
  - Neoplasm malignant [Not Recovered/Not Resolved]
  - Tumour pain [Not Recovered/Not Resolved]
  - Drug ineffective [Unknown]
  - Nerve compression [Unknown]

NARRATIVE: CASE EVENT DATE: 201901
